FAERS Safety Report 9163017 (Version 2)
Quarter: 2013Q2

REPORT INFORMATION
  Report Type: Spontaneous
  Country: JP (occurrence: None)
  Receive Date: 20130227
  Receipt Date: 20130405
  Transmission Date: 20140414
  Serious: Yes (Hospitalization)
  Sender: FDA-Public Use
  Company Number: JP-20130014

PATIENT
  Age: 68 Year
  Sex: Male

DRUGS (6)
  1. LIPIODOL [Suspect]
     Indication: THERAPEUTIC EMBOLISATION
     Route: 013
     Dates: start: 20101018, end: 20101018
  2. NBCA [Suspect]
     Indication: THERAPEUTIC EMBOLISATION
     Route: 013
     Dates: start: 20101018, end: 20101018
  3. EPINEPHRINE (ADRENALINE) [Concomitant]
  4. LIDOCAINE (LIDOCAINE HYDROCHLORIDE) [Concomitant]
  5. NORADRENALINE (NOREPINEPHRINE) [Concomitant]
  6. THROMBIN [Concomitant]

REACTIONS (6)
  - Liver abscess [None]
  - Off label use [None]
  - Pneumonia aspiration [None]
  - Vascular pseudoaneurysm [None]
  - Bacterial infection [None]
  - Tumour thrombosis [None]
